FAERS Safety Report 19846029 (Version 2)
Quarter: 2021Q4

REPORT INFORMATION
  Report Type: Spontaneous
  Country: JP (occurrence: JP)
  Receive Date: 20210917
  Receipt Date: 20211022
  Transmission Date: 20220303
  Serious: Yes (Life-Threatening, Hospitalization, Other)
  Sender: FDA-Public Use
  Company Number: JP-SA-SAC20210915000013

PATIENT
  Age: 67 Year
  Sex: Male

DRUGS (3)
  1. OXALIPLATIN [Suspect]
     Active Substance: OXALIPLATIN
     Indication: Gastric cancer stage IV
     Dosage: 85 MG/M2, ONCE IN 2 WEEKS
     Route: 040
  2. FLUOROURACIL [Suspect]
     Active Substance: FLUOROURACIL
     Indication: Gastric cancer stage IV
     Dosage: 400 MG/M2, ONCE IN 2 WEEKS
     Route: 040
  3. LEVOLEUCOVORIN CALCIUM [Suspect]
     Active Substance: LEVOLEUCOVORIN CALCIUM
     Indication: Gastric cancer stage IV
     Dosage: 200 MG/M2
     Route: 040

REACTIONS (5)
  - Lactic acidosis [Recovering/Resolving]
  - Metabolic acidosis [Recovering/Resolving]
  - Hyperammonaemia [Recovering/Resolving]
  - Depressed level of consciousness [Recovering/Resolving]
  - Agitation [Recovering/Resolving]
